FAERS Safety Report 5868942-8 (Version None)
Quarter: 2008Q3

REPORT INFORMATION
  Report Type: 
  Country: None (occurrence: None)
  Receive Date: 20080902
  Receipt Date: 20080902
  Transmission Date: 20090109
  Serious: Yes (Other)
  Sender: FDA-Public Use
  Company Number: None

PATIENT
  Sex: Female
  Weight: 90.7194 kg

DRUGS (1)
  1. REBIF [Suspect]
     Indication: MULTIPLE SCLEROSIS
     Dosage: 44 MCG/0.5 ML 3 DAYS PER WEEK SQ
     Route: 058
     Dates: start: 20080401, end: 20080828

REACTIONS (2)
  - PARALYSIS [None]
  - PARAPLEGIA [None]
